FAERS Safety Report 23966932 (Version 1)
Quarter: 2024Q2

REPORT INFORMATION
  Report Type: Spontaneous
  Country: US (occurrence: US)
  Receive Date: 20240612
  Receipt Date: 20240612
  Transmission Date: 20240717
  Serious: Yes (Other)
  Sender: FDA-Public Use
  Company Number: US-Vifor (International) Inc.-VIT-2024-05047

PATIENT
  Age: 49 Year
  Sex: Male

DRUGS (1)
  1. MIRCERA [Suspect]
     Active Substance: METHOXY POLYETHYLENE GLYCOL-EPOETIN BETA
     Indication: Nephrogenic anaemia
     Dosage: PATIENT RECEIVED 7 PRIOR DOSES OF MIRCERA
     Route: 040
     Dates: start: 20240217, end: 20240525

REACTIONS (4)
  - Drug hypersensitivity [Unknown]
  - Dyspnoea [Unknown]
  - Chest pain [Unknown]
  - Back pain [Unknown]

NARRATIVE: CASE EVENT DATE: 20240525
